FAERS Safety Report 6072993-0 (Version None)
Quarter: 2009Q1

REPORT INFORMATION
  Report Type: 
  Country: None (occurrence: None)
  Receive Date: 20090209
  Receipt Date: 20090209
  Transmission Date: 20090719
  Serious: Yes (Other)
  Sender: FDA-Public Use
  Company Number: None

PATIENT
  Age: 25 Year
  Sex: Male
  Weight: 83.9154 kg

DRUGS (2)
  1. EFFEXOR [Suspect]
     Indication: DEPRESSION
     Dosage: 150 MG ONCE A DAY
     Dates: start: 20070501, end: 20080510
  2. ZOLOFT [Suspect]
     Indication: DEPRESSION
     Dosage: 150 MG ONCE A DAY
     Dates: start: 20080501, end: 20081129

REACTIONS (3)
  - ANORGASMIA [None]
  - LOSS OF LIBIDO [None]
  - SEXUAL DYSFUNCTION [None]
